FAERS Safety Report 19008880 (Version 2)
Quarter: 2021Q1

REPORT INFORMATION
  Report Type: Spontaneous
  Country: UA (occurrence: UA)
  Receive Date: 20210315
  Receipt Date: 20210323
  Transmission Date: 20210420
  Serious: Yes (Death, Other)
  Sender: FDA-Public Use
  Company Number: UA-TEVA-2021-UA-1889129

PATIENT
  Sex: Male

DRUGS (2)
  1. AJOVY [Suspect]
     Active Substance: FREMANEZUMAB-VFRM
     Dosage: LAST DOSE ADMINISTERED: 12?FEB?2021. EVERY 5TH DAY OF THE MONTH
     Route: 065
     Dates: start: 202008
  2. AJOVY [Suspect]
     Active Substance: FREMANEZUMAB-VFRM
     Dosage: THREE INJECTIONS (QUARTERLY DOSAGE).
     Route: 065
     Dates: start: 20201005

REACTIONS (6)
  - Fatigue [Unknown]
  - Cardiac failure [Fatal]
  - Coma [Recovered/Resolved]
  - Pyrexia [Unknown]
  - Asthenia [Unknown]
  - Anaphylactic shock [Recovered/Resolved]

NARRATIVE: CASE EVENT DATE: 20210212
